FAERS Safety Report 5282206-5 (Version None)
Quarter: 2007Q1

REPORT INFORMATION
  Report Type: 
  Country: None (occurrence: None)
  Receive Date: 20070330
  Receipt Date: 20070320
  Transmission Date: 20070707
  Serious: Yes (Hospitalization)
  Sender: FDA-Public Use
  Company Number: GR-PFIZER INC-2007021583

PATIENT
  Age: 4 Year

DRUGS (1)
  1. ATARAX [Suspect]
     Indication: URTICARIA
     Dosage: DAILY DOSE:18MG
     Route: 048
     Dates: start: 20070301, end: 20070302

REACTIONS (4)
  - ABNORMAL BEHAVIOUR [None]
  - EYE DISORDER [None]
  - SALIVARY HYPERSECRETION [None]
  - TREMOR [None]
